FAERS Safety Report 10349475 (Version 3)
Quarter: 2014Q3

REPORT INFORMATION
  Report Type: Report from Study
  Country: GB (occurrence: GB)
  Receive Date: 20140730
  Receipt Date: 20140811
  Transmission Date: 20150326
  Serious: Yes (Hospitalization)
  Sender: FDA-Public Use
  Company Number: GB-ABBVIE-14K-167-1262923-00

PATIENT
  Age: 48 Year
  Sex: Female
  Weight: 68 kg

DRUGS (52)
  1. PREDNISOLONE. [Concomitant]
     Active Substance: PREDNISOLONE
     Dosage: 20 (UNIT UNKNOWN)
     Dates: start: 20140515, end: 20140522
  2. OXYCODONE [Concomitant]
     Active Substance: OXYCODONE
     Indication: PRODUCT USED FOR UNKNOWN INDICATION
     Dates: start: 20140414
  3. PREGABALIN. [Concomitant]
     Active Substance: PREGABALIN
     Indication: PRODUCT USED FOR UNKNOWN INDICATION
     Dates: end: 20140502
  4. PREGABALIN. [Concomitant]
     Active Substance: PREGABALIN
     Dosage: 200 (UNIT UNKNOWN)
     Dates: start: 20140502, end: 20140506
  5. BUPRENORPHINE [Concomitant]
     Active Substance: BUPRENORPHINE
     Dosage: 30 (UNIT UNKNOWN)
     Route: 061
     Dates: start: 20140429, end: 20140501
  6. FENTANYL. [Concomitant]
     Active Substance: FENTANYL
     Indication: PRODUCT USED FOR UNKNOWN INDICATION
     Dates: start: 20140505, end: 20140511
  7. FENTANYL. [Concomitant]
     Active Substance: FENTANYL
     Dosage: 50 (UNIT UNKNOWN)
     Dates: start: 20140512
  8. SANDO K [Concomitant]
     Indication: PRODUCT USED FOR UNKNOWN INDICATION
     Dates: start: 20140420, end: 20140422
  9. PREDNISOLONE. [Concomitant]
     Active Substance: PREDNISOLONE
     Indication: PRODUCT USED FOR UNKNOWN INDICATION
  10. PREDNISOLONE. [Concomitant]
     Active Substance: PREDNISOLONE
     Dosage: 10 (UNIT UNKNOWN)
     Dates: start: 20140529
  11. NEFOPAM [Concomitant]
     Active Substance: NEFOPAM
     Indication: PRODUCT USED FOR UNKNOWN INDICATION
  12. KLEEN [Concomitant]
     Indication: PRODUCT USED FOR UNKNOWN INDICATION
     Dosage: 4 (UNIT UNKNOWN)
     Dates: start: 20140520, end: 20140520
  13. MEPTAZINOL [Concomitant]
     Indication: PRODUCT USED FOR UNKNOWN INDICATION
     Dosage: 200 (UNIT UNKNOWN)
     Dates: start: 20140520
  14. LANSOPRAZOLE. [Concomitant]
     Active Substance: LANSOPRAZOLE
     Indication: PRODUCT USED FOR UNKNOWN INDICATION
     Dosage: 30 (UNIT UNKNOWN)
     Dates: end: 20140520
  15. SCANDISHAKE MIX [Concomitant]
     Indication: PRODUCT USED FOR UNKNOWN INDICATION
  16. PENTASA [Concomitant]
     Active Substance: MESALAMINE
     Indication: PRODUCT USED FOR UNKNOWN INDICATION
     Dosage: 2 (UNIT UNKNOWN)
     Dates: start: 20140502, end: 20140513
  17. FENTANYL. [Concomitant]
     Active Substance: FENTANYL
     Indication: PRODUCT USED FOR UNKNOWN INDICATION
     Dosage: 50 (UNIT UNKNOWN)
     Dates: start: 20140512
  18. FENTANYL. [Concomitant]
     Active Substance: FENTANYL
     Dosage: 12 (UNIT UNKNOWN)
     Dates: start: 20140505, end: 20140511
  19. TIZANIDINE [Concomitant]
     Active Substance: TIZANIDINE
     Indication: PRODUCT USED FOR UNKNOWN INDICATION
  20. DULOXETINE [Concomitant]
     Active Substance: DULOXETINE
  21. CLONAZEPAM. [Concomitant]
     Active Substance: CLONAZEPAM
     Indication: PRODUCT USED FOR UNKNOWN INDICATION
     Route: 048
     Dates: start: 20140415, end: 20140506
  22. CREON [Concomitant]
     Active Substance: PANCRELIPASE AMYLASE\PANCRELIPASE LIPASE\PANCRELIPASE PROTEASE
     Indication: PRODUCT USED FOR UNKNOWN INDICATION
     Dosage: 20000 (UNIT UNKNOWN)
     Dates: end: 20140519
  23. PARACETAMOL [Concomitant]
     Active Substance: ACETAMINOPHEN
     Indication: PRODUCT USED FOR UNKNOWN INDICATION
     Dates: start: 20140414
  24. LAXIDO [Concomitant]
     Active Substance: POLYETHYLENE GLYCOL 3350\POTASSIUM CHLORIDE\SODIUM BICARBONATE\SODIUM CHLORIDE
     Indication: PRODUCT USED FOR UNKNOWN INDICATION
     Dosage: 2 (UNIT UNKNOWN)
     Dates: start: 20140507, end: 20140515
  25. CLONAZEPAM. [Concomitant]
     Active Substance: CLONAZEPAM
     Dosage: 500 (UNIT UNKNOWN)
  26. PRUCALOPRIDE [Concomitant]
     Active Substance: PRUCALOPRIDE
     Indication: PRODUCT USED FOR UNKNOWN INDICATION
     Dosage: 1 (UNIT UNKNOWN)
     Dates: start: 20140513, end: 20140516
  27. FENTANYL. [Concomitant]
     Active Substance: FENTANYL
     Indication: PRODUCT USED FOR UNKNOWN INDICATION
     Dosage: 25 (UNIT UNKNOWN)
     Dates: start: 20140502, end: 20140512
  28. DOMPERIDONE [Concomitant]
     Active Substance: DOMPERIDONE
     Indication: PRODUCT USED FOR UNKNOWN INDICATION
  29. PREGABALIN. [Concomitant]
     Active Substance: PREGABALIN
     Dosage: 300 (UNIT UNKNOWN)
     Dates: start: 20140506
  30. DULOXETINE [Concomitant]
     Active Substance: DULOXETINE
     Dosage: 11-MAY-2014
     Dates: end: 20140511
  31. BUPRENORPHINE [Concomitant]
     Active Substance: BUPRENORPHINE
     Indication: PRODUCT USED FOR UNKNOWN INDICATION
     Dosage: 20 MCG/H
     Route: 061
  32. COLESEVELAM [Concomitant]
     Active Substance: COLESEVELAM
     Indication: PRODUCT USED FOR UNKNOWN INDICATION
     Dosage: 1.87 (UNIT UNKNOWN)
     Dates: start: 20140602
  33. SENNA [Concomitant]
     Active Substance: SENNA LEAF\SENNOSIDES\SENNOSIDES A AND B
     Indication: PRODUCT USED FOR UNKNOWN INDICATION
     Dates: end: 20140514
  34. OXYNORM [Concomitant]
     Active Substance: OXYCODONE HYDROCHLORIDE
     Indication: PRODUCT USED FOR UNKNOWN INDICATION
     Dosage: 10 (UNIT UNKNOWN)
     Dates: start: 20140429
  35. METHYLNALTREXONE [Concomitant]
     Active Substance: METHYLNALTREXONE
     Indication: PRODUCT USED FOR UNKNOWN INDICATION
     Dosage: 12 (UNIT UNKNOWN)
     Route: 050
     Dates: start: 20140508, end: 20140518
  36. HUMIRA [Suspect]
     Active Substance: ADALIMUMAB
     Indication: ANKYLOSING SPONDYLITIS
     Route: 050
     Dates: start: 20140317, end: 20140317
  37. AMLODIPINE [Concomitant]
     Active Substance: AMLODIPINE BESYLATE
     Indication: PRODUCT USED FOR UNKNOWN INDICATION
     Dates: start: 20140422
  38. MESALAZINE [Concomitant]
     Active Substance: MESALAMINE
     Indication: PRODUCT USED FOR UNKNOWN INDICATION
  39. DULOXETINE [Concomitant]
     Active Substance: DULOXETINE
     Dosage: 60 (UNIT UNKNOWN)
     Dates: start: 20140512
  40. MESALAZINE [Concomitant]
     Active Substance: MESALAMINE
     Indication: PRODUCT USED FOR UNKNOWN INDICATION
     Dosage: 2 (UNIT UNKNOWN)
     Route: 048
     Dates: start: 20140429, end: 20140502
  41. RANITIDINE [Concomitant]
     Active Substance: RANITIDINE\RANITIDINE HYDROCHLORIDE
     Indication: PRODUCT USED FOR UNKNOWN INDICATION
     Dosage: 150 (UNIT UNKNOWN)
     Dates: start: 20140522
  42. BUDESONIDE. [Concomitant]
     Active Substance: BUDESONIDE
     Indication: PRODUCT USED FOR UNKNOWN INDICATION
     Dosage: 9 (UNIT UNKNOWN)
     Dates: start: 20140513
  43. CREON [Concomitant]
     Active Substance: PANCRELIPASE AMYLASE\PANCRELIPASE LIPASE\PANCRELIPASE PROTEASE
     Dosage: 40000 (UNIT UNKNOWN)
     Dates: start: 20140519, end: 20140520
  44. ADCAL [Concomitant]
     Indication: PRODUCT USED FOR UNKNOWN INDICATION
     Dosage: 1 (UNIT UNKNOWN)
     Dates: start: 20140512
  45. BUSCOPAN [Concomitant]
     Active Substance: BUTYLSCOPOLAMINE BROMIDE
     Indication: PRODUCT USED FOR UNKNOWN INDICATION
     Dosage: 20 (UNIT UNKNOWN)
     Dates: start: 20140506, end: 20140506
  46. PREDNISOLONE. [Concomitant]
     Active Substance: PREDNISOLONE
     Dosage: 15 (UNIT UNKNOWN)
     Dates: start: 20140522, end: 20140528
  47. DULOXETINE [Concomitant]
     Active Substance: DULOXETINE
     Indication: PRODUCT USED FOR UNKNOWN INDICATION
     Dosage: 60 (UNIT UNKNOWN)
     Dates: end: 20140501
  48. HUMIRA [Suspect]
     Active Substance: ADALIMUMAB
     Route: 050
     Dates: start: 20140420
  49. AMLODIPINE [Concomitant]
     Active Substance: AMLODIPINE BESYLATE
     Dates: start: 20140429
  50. PREDNISOLONE. [Concomitant]
     Active Substance: PREDNISOLONE
     Dosage: 30 (UNIT UNKNOWN)
     Dates: start: 20140502, end: 20140515
  51. CALOGEN [Concomitant]
     Indication: PRODUCT USED FOR UNKNOWN INDICATION
     Dosage: 40 (UNIT UNKNOWN)
  52. LOPERAMIDE [Concomitant]
     Active Substance: LOPERAMIDE
     Indication: PRODUCT USED FOR UNKNOWN INDICATION
     Dosage: 2 (UNIT UNKNOWN)
     Dates: start: 20140503, end: 20140506

REACTIONS (14)
  - Red blood cell count decreased [Unknown]
  - Crohn^s disease [Recovering/Resolving]
  - Crohn^s disease [Recovering/Resolving]
  - Neutrophil count increased [Unknown]
  - Eosinophil count decreased [Unknown]
  - Neutrophil count increased [Unknown]
  - Blood urea decreased [Unknown]
  - Blood fibrinogen decreased [Unknown]
  - Adjusted calcium decreased [Unknown]
  - Blood creatinine decreased [Unknown]
  - White blood cell count increased [Unknown]
  - Alanine aminotransferase increased [Unknown]
  - Protein total decreased [Unknown]
  - Globulins decreased [Unknown]

NARRATIVE: CASE EVENT DATE: 20140414
